FAERS Safety Report 20103682 (Version 1)
Quarter: 2021Q4

REPORT INFORMATION
  Report Type: Spontaneous
  Country: US (occurrence: None)
  Receive Date: 20211123
  Receipt Date: 20211123
  Transmission Date: 20220304
  Serious: Yes (Hospitalization)
  Sender: FDA-Public Use
  Company Number: None

PATIENT
  Age: 71 Year
  Sex: Female

DRUGS (4)
  1. IMATINIB MESYLATE [Suspect]
     Active Substance: IMATINIB MESYLATE
     Indication: Chronic myeloid leukaemia
     Dosage: FREQUENCY : DAILY;?
     Route: 048
     Dates: start: 20160408
  2. NITROGLCER DIS 0.2MG/HR [Concomitant]
     Dates: start: 20180509
  3. ENTRESTO TAB 24-26 MG [Concomitant]
     Dates: start: 20210315
  4. ALLUPURINOL TAB 300 MG [Concomitant]
     Dates: start: 20210313

REACTIONS (3)
  - Respiratory disorder [None]
  - Therapy interrupted [None]
  - Unevaluable event [None]

NARRATIVE: CASE EVENT DATE: 20211121
